FAERS Safety Report 18213119 (Version 1)
Quarter: 2020Q3

REPORT INFORMATION
  Report Type: Spontaneous
  Country: US (occurrence: US)
  Receive Date: 20200830
  Receipt Date: 20200830
  Transmission Date: 20201103
  Serious: Yes (Other)
  Sender: FDA-Public Use
  Company Number: None

PATIENT
  Age: 41 Year
  Sex: Female
  Weight: 119.25 kg

DRUGS (1)
  1. BOTOX [Suspect]
     Active Substance: ONABOTULINUMTOXINA
     Indication: SKIN COSMETIC PROCEDURE
     Dates: start: 20171215

REACTIONS (15)
  - Panic attack [None]
  - Muscle tightness [None]
  - Multiple chemical sensitivity [None]
  - Feeling abnormal [None]
  - Immune system disorder [None]
  - Migraine [None]
  - Anxiety [None]
  - Decreased appetite [None]
  - Diarrhoea [None]
  - Tinnitus [None]
  - Dizziness [None]
  - Seizure [None]
  - Insomnia [None]
  - Thyroid disorder [None]
  - Depersonalisation/derealisation disorder [None]

NARRATIVE: CASE EVENT DATE: 20180101
